FAERS Safety Report 8273556-9 (Version None)
Quarter: 2012Q2

REPORT INFORMATION
  Report Type: 
  Country: None (occurrence: None)
  Receive Date: 20120411
  Receipt Date: 20120110
  Transmission Date: 20120825
  Serious: No
  Sender: FDA-Public Use
  Company Number: US-TEVA-317229USA

PATIENT
  Age: 43 Year
  Sex: Female

DRUGS (4)
  1. NUVIGIL [Suspect]
  2. CALCIUM CHANNEL BLOCKERS [Concomitant]
  3. ZOLPIDEM TARTRATE [Concomitant]
  4. FEXOFENADINE [Concomitant]

REACTIONS (1)
  - DRY MOUTH [None]
